FAERS Safety Report 5644412-7 (Version None)
Quarter: 2008Q1

REPORT INFORMATION
  Report Type: 
  Country: None (occurrence: None)
  Receive Date: 20080229
  Receipt Date: 20080219
  Transmission Date: 20080703
  Serious: Yes (Hospitalization)
  Sender: FDA-Public Use
  Company Number: US-AMGEN-KDL248179

PATIENT
  Sex: Male
  Weight: 79.6 kg

DRUGS (2)
  1. ENBREL [Suspect]
     Indication: PSORIATIC ARTHROPATHY
     Route: 058
     Dates: start: 20040819, end: 20070929
  2. ENBREL [Suspect]
     Indication: PSORIASIS

REACTIONS (5)
  - ARTHRALGIA [None]
  - EPISTAXIS [None]
  - FAECES DISCOLOURED [None]
  - PSORIASIS [None]
  - THROMBOCYTOPENIA [None]
